FAERS Safety Report 20001299 (Version 1)
Quarter: 2021Q4

REPORT INFORMATION
  Report Type: Spontaneous
  Country: US (occurrence: US)
  Receive Date: 20211027
  Receipt Date: 20211027
  Transmission Date: 20220303
  Serious: Yes (Disabling)
  Sender: FDA-Public Use
  Company Number: None

PATIENT
  Age: 39 Year
  Sex: Male
  Weight: 83.25 kg

DRUGS (1)
  1. TRIAZOLAM [Suspect]
     Active Substance: TRIAZOLAM
     Indication: Sleep disorder
     Dosage: ?          QUANTITY:1 TABLET(S);
     Route: 048
     Dates: start: 20210723, end: 20211022

REACTIONS (3)
  - Product measured potency issue [None]
  - Product formulation issue [None]
  - Negative thoughts [None]

NARRATIVE: CASE EVENT DATE: 20211021
